FAERS Safety Report 4389125-7 (Version None)
Quarter: 2004Q2

REPORT INFORMATION
  Report Type: 
  Country: None (occurrence: None)
  Receive Date: 20040628
  Receipt Date: 20040615
  Transmission Date: 20050107
  Serious: Yes (Hospitalization)
  Sender: FDA-Public Use
  Company Number: 2004AP03179

PATIENT
  Age: 80 Year
  Sex: Male

DRUGS (2)
  1. ZOLADEX [Suspect]
     Indication: PROSTATE CANCER
     Dosage: 3.6 MG SQ
     Route: 058
  2. CASODEX [Suspect]
     Indication: PROSTATE CANCER
     Dosage: 8.0 MG DAILY PO
     Route: 048

REACTIONS (1)
  - INTERSTITIAL LUNG DISEASE [None]
